FAERS Safety Report 16613617 (Version 3)
Quarter: 2019Q4

REPORT INFORMATION
  Report Type: Report from Study
  Country: US (occurrence: US)
  Receive Date: 20190723
  Receipt Date: 20191108
  Transmission Date: 20200122
  Serious: Yes (Hospitalization)
  Sender: FDA-Public Use
  Company Number: US-ROCHE-2352534

PATIENT
  Age: 70 Year
  Sex: Male

DRUGS (1)
  1. OCREVUS [Suspect]
     Active Substance: OCRELIZUMAB
     Indication: PRIMARY PROGRESSIVE MULTIPLE SCLEROSIS
     Dosage: 05/OCT/2017, 12/APR/2018, 12/OCT/2018, 19/APR/2019, 07/SEP/2019, 25/OCT/2019
     Route: 065
     Dates: start: 20170914

REACTIONS (10)
  - Muscular weakness [Unknown]
  - Decubitus ulcer [Recovered/Resolved]
  - Infection [Unknown]
  - Asthenia [Unknown]
  - Multiple sclerosis relapse [Recovered/Resolved]
  - Hypoaesthesia [Recovered/Resolved]
  - Swelling [Unknown]
  - Staphylococcal infection [Recovered/Resolved]
  - Chills [Unknown]
  - Furuncle [Unknown]

NARRATIVE: CASE EVENT DATE: 20190809
